FAERS Safety Report 11870940 (Version 1)
Quarter: 2015Q4

REPORT INFORMATION
  Report Type: Spontaneous
  Country: US (occurrence: None)
  Receive Date: 20151224
  Receipt Date: 20151224
  Transmission Date: 20160305
  Serious: Yes (Other)
  Sender: FDA-Public Use
  Company Number: None

PATIENT
  Age: 28 Year
  Sex: Female

DRUGS (1)
  1. D.H.E 1 MG IVP [Suspect]
     Active Substance: DIHYDROERGOTAMINE
     Dosage: 1 MG, IVP

REACTIONS (2)
  - Urticaria [None]
  - Feeling abnormal [None]

NARRATIVE: CASE EVENT DATE: 20141023
